FAERS Safety Report 15465975 (Version 3)
Quarter: 2018Q4

REPORT INFORMATION
  Report Type: Spontaneous
  Country: US (occurrence: US)
  Receive Date: 20181004
  Receipt Date: 20181214
  Transmission Date: 20190204
  Serious: No
  Sender: FDA-Public Use
  Company Number: US-GLAXOSMITHKLINE-US2018163068

PATIENT
  Age: 79 Year
  Sex: Female

DRUGS (2)
  1. VALACYCLOVIR [Suspect]
     Active Substance: VALACYCLOVIR HYDROCHLORIDE
     Indication: HERPES ZOSTER
  2. SHINGRIX [Suspect]
     Active Substance: RECOMBINANT VARICELLA ZOSTER VIRUS (VZV) GLYCOPROTEIN E
     Indication: PROPHYLAXIS
     Route: 030
     Dates: start: 20180831, end: 20180831

REACTIONS (9)
  - Burning sensation [Not Recovered/Not Resolved]
  - Oral herpes [Not Recovered/Not Resolved]
  - Rash macular [Recovering/Resolving]
  - Erythema [Not Recovered/Not Resolved]
  - Myalgia [Recovered/Resolved]
  - Rash vesicular [Not Recovered/Not Resolved]
  - Herpes simplex [Unknown]
  - Pain [Not Recovered/Not Resolved]
  - Swelling [Not Recovered/Not Resolved]

NARRATIVE: CASE EVENT DATE: 20180905
